FAERS Safety Report 7283759-8 (Version None)
Quarter: 2011Q1

REPORT INFORMATION
  Report Type: 
  Country: None (occurrence: None)
  Receive Date: 20110209
  Receipt Date: 20110207
  Transmission Date: 20110831
  Serious: Yes (Hospitalization)
  Sender: FDA-Public Use
  Company Number: DE-ABBOTT-11P-062-0703240-00

PATIENT
  Age: 69 Year
  Sex: Female

DRUGS (6)
  1. AUROTHIOMALAT [Concomitant]
     Dates: start: 20070101
  2. AUROTHIOMALAT [Concomitant]
     Dates: start: 20060101, end: 20070101
  3. AUROTHIOMALAT [Concomitant]
     Dates: end: 20050101
  4. AUROTHIOMALAT [Concomitant]
     Indication: PRODUCT USED FOR UNKNOWN INDICATION
     Dates: start: 20050101
  5. AUROTHIOMALAT [Concomitant]
     Dates: start: 20060101, end: 20060101
  6. HUMIRA [Suspect]
     Indication: RHEUMATOID ARTHRITIS
     Route: 058
     Dates: start: 20040701

REACTIONS (1)
  - CONGESTIVE CARDIOMYOPATHY [None]
